FAERS Safety Report 10670189 (Version 1)
Quarter: 2014Q4

REPORT INFORMATION
  Report Type: Spontaneous
  Country: US (occurrence: US)
  Receive Date: 20141223
  Receipt Date: 20141223
  Transmission Date: 20150529
  Serious: Yes (Death)
  Sender: FDA-Public Use
  Company Number: US-BIOGENIDEC-2014BI133130

PATIENT
  Sex: Male

DRUGS (1)
  1. TYSABRI [Suspect]
     Active Substance: NATALIZUMAB
     Indication: MULTIPLE SCLEROSIS
     Route: 042

REACTIONS (8)
  - Hemiparesis [Unknown]
  - Urinary tract infection [Unknown]
  - Vasculitis cerebral [Unknown]
  - Faecal incontinence [Unknown]
  - Urinary incontinence [Unknown]
  - Pneumonia aspiration [Fatal]
  - Monoplegia [Unknown]
  - Muscle spasticity [Unknown]
